FAERS Safety Report 10218771 (Version 1)
Quarter: 2014Q2

REPORT INFORMATION
  Report Type: Spontaneous
  Country: CL (occurrence: CL)
  Receive Date: 20140605
  Receipt Date: 20140605
  Transmission Date: 20141212
  Serious: Yes (Hospitalization, Other)
  Sender: FDA-Public Use
  Company Number: CL-PFIZER INC-2014151408

PATIENT
  Age: 82 Year
  Sex: Female

DRUGS (7)
  1. XALATAN [Suspect]
     Indication: GLAUCOMA
     Dosage: 1 GTT, 1X/DAY
     Route: 047
     Dates: start: 1999
  2. EUTIROX [Concomitant]
  3. ATORVASTATIN [Concomitant]
  4. LORATADIN [Concomitant]
  5. SPIRONOLACTONE [Concomitant]
  6. FLUXAMOL [Concomitant]
  7. ATROVENT [Concomitant]

REACTIONS (4)
  - Bronchitis [Unknown]
  - Bronchiolitis [Unknown]
  - Blindness unilateral [Unknown]
  - Visual acuity reduced [Unknown]
